FAERS Safety Report 4604461-4 (Version None)
Quarter: 2005Q2

REPORT INFORMATION
  Report Type: 
  Country: None (occurrence: None)
  Receive Date: 20050217
  Receipt Date: 20041122
  Transmission Date: 20051028
  Serious: No
  Sender: FDA-Public Use
  Company Number: S04-USA-07504-01

PATIENT
  Age: 73 Year
  Sex: Female

DRUGS (13)
  1. NAMENDA [Suspect]
     Indication: APHASIA
     Dosage: 10 MG BID PO
     Route: 048
     Dates: start: 20040223, end: 20040301
  2. NAMENDA [Suspect]
     Indication: APHASIA
     Dosage: 5 MG QD PO
     Route: 048
     Dates: start: 20040201, end: 20040207
  3. NAMENDA [Suspect]
     Indication: APHASIA
     Dosage: 10 MG QD PO
     Route: 048
     Dates: start: 20040208, end: 20040214
  4. NAMENDA [Suspect]
     Indication: APHASIA
     Dosage: 15 MG QD PO
     Route: 048
     Dates: start: 20040215, end: 20040221
  5. NAMENDA [Suspect]
     Indication: APHASIA
     Dosage: 5 MG QD PO
     Route: 048
     Dates: start: 20040101, end: 20040101
  6. NAMENDA [Suspect]
     Indication: APHASIA
     Dosage: 10 MG QD PO
     Route: 048
     Dates: start: 20040101, end: 20040101
  7. NAMENDA [Suspect]
     Indication: APHASIA
     Dosage: 15 MG QD PO
     Route: 048
     Dates: start: 20040101, end: 20040101
  8. NAMENDA [Suspect]
     Indication: APHASIA
     Dosage: 5 MG QD PO
     Route: 048
     Dates: start: 20041103, end: 20041109
  9. NAMENDA [Suspect]
     Indication: APHASIA
     Dosage: 10 MG QD PO
     Route: 048
     Dates: start: 20041110, end: 20041116
  10. NAMENDA [Suspect]
     Indication: APHASIA
     Dosage: 20 MG QD PO
     Route: 048
     Dates: start: 20040101, end: 20040101
  11. NAMENDA [Suspect]
     Indication: APHASIA
     Dosage: 15 MG QD PO
     Route: 048
     Dates: start: 20041117, end: 20041122
  12. IMITREX [Suspect]
  13. TYLENOL [Concomitant]

REACTIONS (3)
  - DIZZINESS [None]
  - FLUSHING [None]
  - NAUSEA [None]
